FAERS Safety Report 25415503 (Version 1)
Quarter: 2025Q2

REPORT INFORMATION
  Report Type: Spontaneous
  Country: PL (occurrence: PL)
  Receive Date: 20250610
  Receipt Date: 20250610
  Transmission Date: 20250716
  Serious: Yes (Other)
  Sender: NOVO NORDISK
  Company Number: PL-NOVOPROD-1451238

PATIENT
  Sex: Female

DRUGS (1)
  1. SAXENDA [Suspect]
     Active Substance: LIRAGLUTIDE
     Indication: Product used for unknown indication
     Dates: start: 202410, end: 202505

REACTIONS (6)
  - Pancreatic duct dilatation [Unknown]
  - Decreased appetite [Recovering/Resolving]
  - Hypertriglyceridaemia [Unknown]
  - Amylase increased [Not Recovered/Not Resolved]
  - Lipase increased [Not Recovered/Not Resolved]
  - Abdominal pain [Recovering/Resolving]
